APPROVED DRUG PRODUCT: DESIPRAMINE HYDROCHLORIDE
Active Ingredient: DESIPRAMINE HYDROCHLORIDE
Strength: 50MG
Dosage Form/Route: TABLET;ORAL
Application: A204963 | Product #003 | TE Code: AB
Applicant: NOVAST LABORATORIES LTD
Approved: Dec 26, 2017 | RLD: No | RS: No | Type: RX